FAERS Safety Report 23653292 (Version 1)
Quarter: 2024Q1

REPORT INFORMATION
  Report Type: Spontaneous
  Country: CA (occurrence: CA)
  Receive Date: 20240320
  Receipt Date: 20240320
  Transmission Date: 20240409
  Serious: Yes (Hospitalization)
  Sender: FDA-Public Use
  Company Number: CA-PFIZER INC-202400067809

PATIENT
  Age: 83 Year
  Sex: Female

DRUGS (14)
  1. PAXLOVID [Suspect]
     Active Substance: NIRMATRELVIR\RITONAVIR
     Indication: COVID-19 treatment
     Dosage: UNK
  2. DILTIAZEM [Suspect]
     Active Substance: DILTIAZEM
     Dosage: 180 MG, 1X/DAY
     Route: 048
  3. ACETAMINOPHEN [Concomitant]
     Active Substance: ACETAMINOPHEN
  4. BACLOFEN [Concomitant]
     Active Substance: BACLOFEN
  5. CEFUROXIME [Concomitant]
     Active Substance: CEFUROXIME
  6. CLOTRIMAZOLE [Concomitant]
     Active Substance: CLOTRIMAZOLE
  7. DULOXETINE HYDROCHLORIDE [Concomitant]
     Active Substance: DULOXETINE HYDROCHLORIDE
     Route: 048
  8. FUROSEMIDE [Concomitant]
     Active Substance: FUROSEMIDE
     Route: 065
  9. EDOXABAN TOSYLATE [Concomitant]
     Active Substance: EDOXABAN TOSYLATE
  10. METFORMIN [Concomitant]
     Active Substance: METFORMIN HYDROCHLORIDE
  11. NORTRIPTYLINE [Concomitant]
     Active Substance: NORTRIPTYLINE
  12. POTASSIUM [Concomitant]
     Active Substance: POTASSIUM
  13. PREDNISONE [Concomitant]
     Active Substance: PREDNISONE
  14. SOTALOL [Concomitant]
     Active Substance: SOTALOL

REACTIONS (1)
  - Hypotension [Recovered/Resolved]
